FAERS Safety Report 5412391-3 (Version None)
Quarter: 2007Q3

REPORT INFORMATION
  Report Type: 
  Country: None (occurrence: None)
  Receive Date: 20070713
  Receipt Date: 20070506
  Transmission Date: 20080115
  Serious: No
  Sender: FDA-Public Use
  Company Number: 2007SP001690

PATIENT
  Age: 46 Year
  Sex: Female
  Weight: 52.1637 kg

DRUGS (5)
  1. LUNESTA [Suspect]
     Indication: INSOMNIA
     Dosage: 3 MG; HS; ORAL
     Route: 048
     Dates: start: 20070501, end: 20070501
  2. PROZAC [Concomitant]
  3. TOPAMAX [Concomitant]
  4. SINGULAIR [Concomitant]
  5. CLONAZEPAM [Concomitant]

REACTIONS (1)
  - DYSGEUSIA [None]
